FAERS Safety Report 21293573 (Version 1)
Quarter: 2022Q3

REPORT INFORMATION
  Report Type: Spontaneous
  Country: GB (occurrence: GB)
  Receive Date: 20220905
  Receipt Date: 20220905
  Transmission Date: 20221027
  Serious: Yes (Hospitalization)
  Sender: FDA-Public Use
  Company Number: GB-002147023-NVSC2022GB193131

PATIENT
  Sex: Female

DRUGS (21)
  1. REVLIMID [Suspect]
     Active Substance: LENALIDOMIDE
     Indication: Product used for unknown indication
     Dosage: 5 MG
     Route: 065
  2. FILGRASTIM [Suspect]
     Active Substance: FILGRASTIM
     Indication: Product used for unknown indication
     Dosage: 300 UG
     Route: 065
  3. EMTRICITABINE [Concomitant]
     Active Substance: EMTRICITABINE
     Indication: HIV infection
     Dosage: DRUG CUMULATIVE DOSAGE NUMB: 122.041666
     Route: 065
     Dates: start: 20171006
  4. EMTRICITABINE [Concomitant]
     Active Substance: EMTRICITABINE
     Dosage: DRUG CUMULATIVE DOSAGE NUMB: 122.041666
     Route: 065
     Dates: start: 20180805
  5. FOLIC ACID [Concomitant]
     Active Substance: FOLIC ACID
     Indication: Product used for unknown indication
     Route: 065
  6. INSULIN ASPART [Concomitant]
     Active Substance: INSULIN ASPART
     Indication: Product used for unknown indication
     Route: 065
     Dates: start: 20100610
  7. RALTEGRAVIR POTASSIUM [Concomitant]
     Active Substance: RALTEGRAVIR POTASSIUM
     Indication: Alanine aminotransferase increased
     Route: 065
  8. RALTEGRAVIR POTASSIUM [Concomitant]
     Active Substance: RALTEGRAVIR POTASSIUM
     Indication: Aspartate aminotransferase increased
  9. RALTEGRAVIR POTASSIUM [Concomitant]
     Active Substance: RALTEGRAVIR POTASSIUM
     Indication: Intentional product use issue
  10. KALETRA [Concomitant]
     Active Substance: LOPINAVIR\RITONAVIR
     Indication: Product used for unknown indication
     Route: 065
     Dates: start: 20100610
  11. RITONAVIR [Concomitant]
     Active Substance: RITONAVIR
     Indication: Product used for unknown indication
     Route: 065
  12. LABETALOL [Concomitant]
     Active Substance: LABETALOL\LABETALOL HYDROCHLORIDE
     Indication: Product used for unknown indication
     Route: 065
     Dates: start: 20090101, end: 20100601
  13. LAMIVUDINE [Concomitant]
     Active Substance: LAMIVUDINE
     Indication: Product used for unknown indication
     Route: 065
  14. LOPINAVIR [Concomitant]
     Active Substance: LOPINAVIR
     Indication: Product used for unknown indication
     Route: 065
  15. METFORMIN HYDROCHLORIDE [Concomitant]
     Active Substance: METFORMIN HYDROCHLORIDE
     Indication: Product used for unknown indication
     Route: 065
  16. NEVIRAPINE [Concomitant]
     Active Substance: NEVIRAPINE
     Indication: Product used for unknown indication
     Route: 065
  17. INSULIN ASPART [Concomitant]
     Active Substance: INSULIN ASPART
     Indication: Product used for unknown indication
     Route: 065
  18. FOLATE SODIUM [Concomitant]
     Active Substance: FOLATE SODIUM
     Indication: Product used for unknown indication
     Route: 065
     Dates: start: 20171006
  19. TECAVIR [TENOFOVIR DISOPROXIL] [Concomitant]
     Indication: Product used for unknown indication
     Route: 065
  20. TRUVADA [Concomitant]
     Active Substance: EMTRICITABINE\TENOFOVIR DISOPROXIL FUMARATE
     Indication: Product used for unknown indication
     Route: 065
     Dates: start: 20090110, end: 20100610
  21. ZIDOVUDINE [Concomitant]
     Active Substance: ZIDOVUDINE
     Indication: Product used for unknown indication
     Route: 065
     Dates: start: 20090110

REACTIONS (2)
  - Dyspnoea [Unknown]
  - COVID-19 [Unknown]
